FAERS Safety Report 5499950-7 (Version None)
Quarter: 2007Q4

REPORT INFORMATION
  Report Type: 
  Country: None (occurrence: None)
  Receive Date: 20071026
  Receipt Date: 20071015
  Transmission Date: 20080405
  Serious: Yes (Death)
  Sender: FDA-Public Use
  Company Number: US-PFIZER INC-2007088866

PATIENT
  Sex: Female

DRUGS (2)
  1. CHANTIX [Suspect]
  2. BEXTRA [Suspect]

REACTIONS (1)
  - DEATH [None]
